FAERS Safety Report 8972470 (Version 1)
Quarter: 2012Q4

REPORT INFORMATION
  Report Type: 
  Country: US (occurrence: US)
  Receive Date: 20121218
  Receipt Date: 20121218
  Transmission Date: 20130627
  Serious: Yes (Hospitalization)
  Sender: FDA-Public Use
  Company Number: US-ARROW-2012-21657

PATIENT
  Sex: Male
  Weight: 75 kg

DRUGS (1)
  1. CABERGOLINE [Suspect]
     Indication: PITUITARY TUMOUR BENIGN
     Dosage: 0.5 mg, 1/week
     Route: 048
     Dates: start: 201208, end: 201211

REACTIONS (3)
  - Chest pain [Recovered/Resolved]
  - Nausea [Not Recovered/Not Resolved]
  - Dizziness [Not Recovered/Not Resolved]
